FAERS Safety Report 19745582 (Version 33)
Quarter: 2025Q2

REPORT INFORMATION
  Report Type: Report from Study
  Country: US (occurrence: US)
  Receive Date: 20210825
  Receipt Date: 20250626
  Transmission Date: 20250717
  Serious: Yes (Hospitalization, Other)
  Sender: TAKEDA
  Company Number: US-TAKEDA-2021TUS033517

PATIENT
  Age: 21 Year
  Sex: Female
  Weight: 54 kg

DRUGS (53)
  1. HUMAN IMMUNOGLOBULIN G [Suspect]
     Active Substance: HUMAN IMMUNOGLOBULIN G
     Indication: Functional gastrointestinal disorder
     Dosage: 25 GRAM, Q2WEEKS
     Dates: start: 20210518
  2. HUMAN IMMUNOGLOBULIN G [Suspect]
     Active Substance: HUMAN IMMUNOGLOBULIN G
     Indication: Migraine without aura
     Dosage: 25 GRAM, Q2WEEKS
  3. GAMMAGARD LIQUID [Suspect]
     Active Substance: HUMAN IMMUNOGLOBULIN G
     Indication: Migraine without aura
     Dosage: 25 GRAM, Q2WEEKS
  4. GAMMAGARD LIQUID [Suspect]
     Active Substance: HUMAN IMMUNOGLOBULIN G
     Indication: Functional gastrointestinal disorder
  5. VENOFER [Suspect]
     Active Substance: IRON SUCROSE
     Indication: Product used for unknown indication
  6. TIZANIDINE [Concomitant]
     Active Substance: TIZANIDINE
  7. DIPHENHYDRAMINE HYDROCHLORIDE [Concomitant]
     Active Substance: DIPHENHYDRAMINE HYDROCHLORIDE
  8. DEXAMETHASONE [Concomitant]
     Active Substance: DEXAMETHASONE
  9. Dulcolax [Concomitant]
  10. SODIUM CHLORIDE [Concomitant]
     Active Substance: SODIUM CHLORIDE
  11. SODIUM CHLORIDE [Concomitant]
     Active Substance: SODIUM CHLORIDE
  12. EPINEPHRINE [Concomitant]
     Active Substance: EPINEPHRINE
  13. LEVOTHYROXINE [Concomitant]
     Active Substance: LEVOTHYROXINE
  14. PROZAC [Concomitant]
     Active Substance: FLUOXETINE HYDROCHLORIDE
  15. REMERON [Concomitant]
     Active Substance: MIRTAZAPINE
  16. WELLBUTRIN XL [Concomitant]
     Active Substance: BUPROPION HYDROCHLORIDE
  17. PROPRANOLOL [Concomitant]
     Active Substance: PROPRANOLOL HYDROCHLORIDE
  18. ZYRTEC [Concomitant]
     Active Substance: CETIRIZINE HYDROCHLORIDE
  19. BOTOX [Concomitant]
     Active Substance: ONABOTULINUMTOXINA
  20. ACETAMINOPHEN [Concomitant]
     Active Substance: ACETAMINOPHEN
  21. CLONAZEPAM [Concomitant]
     Active Substance: CLONAZEPAM
  22. MIRALAX [Concomitant]
     Active Substance: POLYETHYLENE GLYCOL 3350
  23. MIRENA [Concomitant]
     Active Substance: LEVONORGESTREL
  24. COMPAZINE [Concomitant]
     Active Substance: PROCHLORPERAZINE MALEATE
  25. XARELTO [Concomitant]
     Active Substance: RIVAROXABAN
  26. TOPIRAMATE [Concomitant]
     Active Substance: TOPIRAMATE
  27. OMEPRAZOLE [Concomitant]
     Active Substance: OMEPRAZOLE
  28. LIDOCAINE [Concomitant]
     Active Substance: LIDOCAINE
  29. HEPARIN [Concomitant]
     Active Substance: HEPARIN SODIUM
  30. MIRTAZAPINE [Concomitant]
     Active Substance: MIRTAZAPINE
  31. BUPROPION [Concomitant]
     Active Substance: BUPROPION
  32. NORETHINDRONE [Concomitant]
     Active Substance: NORETHINDRONE
  33. AJOVY [Concomitant]
     Active Substance: FREMANEZUMAB-VFRM
  34. SYRINGOL [Concomitant]
  35. ASCORBIC ACID\IRON [Concomitant]
     Active Substance: ASCORBIC ACID\IRON
  36. OXYCODONE HYDROCHLORIDE [Concomitant]
     Active Substance: OXYCODONE HYDROCHLORIDE
  37. REXULTI [Concomitant]
     Active Substance: BREXPIPRAZOLE
  38. FAMOTIDINE [Concomitant]
     Active Substance: FAMOTIDINE
  39. METHOCARBAMOL [Concomitant]
     Active Substance: METHOCARBAMOL
  40. CEFDINIR [Concomitant]
     Active Substance: CEFDINIR
  41. LACTATED RINGERS SOLUTION [Concomitant]
     Active Substance: CALCIUM CHLORIDE\POTASSIUM CHLORIDE\SODIUM CHLORIDE\SODIUM LACTATE
  42. VRAYLAR [Concomitant]
     Active Substance: CARIPRAZINE
  43. Lmx [Concomitant]
  44. SEROQUEL [Concomitant]
     Active Substance: QUETIAPINE FUMARATE
  45. TIZANIDINE HYDROCHLORIDE [Concomitant]
     Active Substance: TIZANIDINE HYDROCHLORIDE
  46. LASIX [Concomitant]
     Active Substance: FUROSEMIDE
  47. OXYCODONE [Concomitant]
     Active Substance: OXYCODONE
  48. OXYCODONE [Concomitant]
     Active Substance: OXYCODONE
  49. DIPHENHYDRAMINE [Concomitant]
     Active Substance: DIPHENHYDRAMINE
  50. LEVOTHYROXINE SODIUM [Concomitant]
     Active Substance: LEVOTHYROXINE SODIUM
  51. CYCLOBENZAPRINE HYDROCHLORIDE [Concomitant]
     Active Substance: CYCLOBENZAPRINE HYDROCHLORIDE
  52. WARFARIN SODIUM [Concomitant]
     Active Substance: WARFARIN SODIUM
  53. ACETAZOLAMIDE [Concomitant]
     Active Substance: ACETAZOLAMIDE

REACTIONS (40)
  - Vascular device infection [Unknown]
  - Haematological infection [Unknown]
  - Loss of consciousness [Unknown]
  - Thrombosis [Recovering/Resolving]
  - Pulmonary embolism [Unknown]
  - Neck pain [Unknown]
  - Urinary tract infection [Unknown]
  - Gastroenteritis viral [Unknown]
  - Staphylococcal infection [Unknown]
  - Tearfulness [Unknown]
  - Procedural pain [Unknown]
  - Nasopharyngitis [Unknown]
  - Obstruction [Unknown]
  - Fall [Unknown]
  - Illness [Unknown]
  - Off label use [Unknown]
  - Product dose omission issue [Unknown]
  - Food poisoning [Unknown]
  - Panic attack [Unknown]
  - Blood glucose abnormal [Unknown]
  - Hypoaesthesia [Unknown]
  - Influenza [Recovered/Resolved]
  - Feeling abnormal [Unknown]
  - Anaemia [Unknown]
  - Abdominal pain upper [Unknown]
  - Influenza like illness [Unknown]
  - Malaise [Unknown]
  - Pain [Recovering/Resolving]
  - Tachycardia [Unknown]
  - Migraine [Unknown]
  - Hypotension [Unknown]
  - Vomiting [Not Recovered/Not Resolved]
  - Pyrexia [Not Recovered/Not Resolved]
  - Dizziness [Unknown]
  - Headache [Unknown]
  - Nausea [Unknown]
  - Fatigue [Recovering/Resolving]
  - Peripheral swelling [Unknown]
  - Swelling face [Unknown]
  - Back pain [Unknown]

NARRATIVE: CASE EVENT DATE: 20210518
